FAERS Safety Report 10531219 (Version 1)
Quarter: 2014Q4

REPORT INFORMATION
  Report Type: Spontaneous
  Country: US (occurrence: US)
  Receive Date: 20141021
  Receipt Date: 20141021
  Transmission Date: 20150529
  Serious: Yes (Hospitalization)
  Sender: FDA-Public Use
  Company Number: US-ASTRAZENECA-2014SE77743

PATIENT
  Age: 75 Year

DRUGS (2)
  1. BRILINTA [Suspect]
     Active Substance: TICAGRELOR
     Indication: ACUTE CORONARY SYNDROME
     Route: 048
  2. TRIPLE THERAPY [Concomitant]
     Indication: ATRIAL FIBRILLATION

REACTIONS (2)
  - Haemorrhage [Recovered/Resolved]
  - Procedural haemorrhage [Recovering/Resolving]
